FAERS Safety Report 22177707 (Version 1)
Quarter: 2023Q2

REPORT INFORMATION
  Report Type: Report from Study
  Country: CA (occurrence: CA)
  Receive Date: 20230405
  Receipt Date: 20230405
  Transmission Date: 20230721
  Serious: Yes (Other)
  Sender: FDA-Public Use
  Company Number: CA-JNJFOC-20221100342

PATIENT
  Age: 25 Year
  Sex: Female
  Weight: 72.4 kg

DRUGS (1)
  1. REMICADE [Suspect]
     Active Substance: INFLIXIMAB
     Indication: Colitis ulcerative
     Dosage: 31-OCT-2022 APPOINTMENT WAS RESCHEDULED.
     Route: 041
     Dates: start: 20171211

REACTIONS (3)
  - Mammoplasty [Unknown]
  - Nasopharyngitis [Recovering/Resolving]
  - Wound [Not Recovered/Not Resolved]

NARRATIVE: CASE EVENT DATE: 20221031
